FAERS Safety Report 9867796 (Version 2)
Quarter: 2014Q1

REPORT INFORMATION
  Report Type: Report from Study
  Country: US (occurrence: US)
  Receive Date: 20140204
  Receipt Date: 20140328
  Transmission Date: 20141002
  Serious: Yes (Hospitalization)
  Sender: FDA-Public Use
  Company Number: US-PURDUE-USA-2014-0110792

PATIENT
  Age: 56 Year
  Sex: Female
  Weight: 96.6 kg

DRUGS (4)
  1. OXY CR TAB [Suspect]
     Indication: PAIN
     Dosage: 30 MG, Q12H
     Route: 048
     Dates: start: 20131204, end: 20140127
  2. OXY CR TAB [Suspect]
     Dosage: 60 MG, Q12H PRN
     Route: 048
  3. NORCO [Suspect]
     Indication: PAIN
     Dosage: 1 TABLET, Q4- 6H PRN
     Route: 048
  4. DIAZEPAM [Suspect]
     Indication: MUSCLE SPASMS
     Dosage: 10 MG, SEE TEXT
     Route: 048

REACTIONS (3)
  - Pancreatic disorder [Unknown]
  - Hypertension [Unknown]
  - Pancreatic disorder [Unknown]
